FAERS Safety Report 25966480 (Version 1)
Quarter: 2025Q4

REPORT INFORMATION
  Report Type: Spontaneous
  Country: US (occurrence: US)
  Receive Date: 20251028
  Receipt Date: 20251028
  Transmission Date: 20260118
  Serious: No
  Sender: RANBAXY
  Company Number: US-MIMS-SUN-2025-USA-55235

PATIENT
  Sex: Female

DRUGS (1)
  1. PSEUDOEPHEDRINE [Suspect]
     Active Substance: PSEUDOEPHEDRINE
     Indication: Sinus disorder
     Dosage: UNK EVERY 12 HOURS
     Route: 065
     Dates: start: 20250601

REACTIONS (1)
  - Pollakiuria [Unknown]
